FAERS Safety Report 9395956 (Version 1)
Quarter: 2013Q3

REPORT INFORMATION
  Report Type: Spontaneous
  Country: BR (occurrence: BR)
  Receive Date: 20130711
  Receipt Date: 20130711
  Transmission Date: 20140515
  Serious: Yes (Other)
  Sender: FDA-Public Use
  Company Number: BR-AMGEN-BRASP2013048562

PATIENT
  Age: 66 Year
  Sex: Female
  Weight: 80 kg

DRUGS (6)
  1. ENBREL [Suspect]
     Indication: RHEUMATOID ARTHRITIS
     Dosage: 50 MG, 1X/WEEK
     Route: 058
     Dates: start: 201211, end: 201302
  2. ARADOIS [Concomitant]
     Dosage: UNK UNK, UNK
  3. GLIFAGE [Concomitant]
     Dosage: UNK UNK, UNK
  4. METFORMIN [Concomitant]
     Dosage: UNK UNK, UNK
  5. GLIBENCLAMIDE [Concomitant]
     Dosage: UNK UNK, UNK
  6. ARAVA [Concomitant]
     Dosage: UNK UNK, UNK

REACTIONS (1)
  - Joint injury [Unknown]
